FAERS Safety Report 19789998 (Version 1)
Quarter: 2021Q3

REPORT INFORMATION
  Report Type: Spontaneous
  Country: DE (occurrence: DE)
  Receive Date: 20210904
  Receipt Date: 20210904
  Transmission Date: 20211014
  Serious: Yes (Hospitalization, Other)
  Sender: FDA-Public Use
  Company Number: DE-TEVA-2021-DE-1949773

PATIENT
  Age: 60 Year
  Sex: Male

DRUGS (7)
  1. LEVACT [Suspect]
     Active Substance: BENDAMUSTINE HYDROCHLORIDE
     Indication: NON-HODGKIN^S LYMPHOMA
     Dosage: (6 ADMINISTRATIONS)
     Route: 042
     Dates: start: 20140411, end: 20140828
  2. MABTHERA [Suspect]
     Active Substance: RITUXIMAB
     Dosage: (CYCLE 7 AND 8 IN MO28457)
     Route: 058
     Dates: start: 2015
  3. MABTHERA [Suspect]
     Active Substance: RITUXIMAB
     Route: 058
     Dates: start: 20160623
  4. PENTAMIDINE [Concomitant]
     Active Substance: PENTAMIDINE
     Indication: INFECTION PROPHYLAXIS
     Route: 065
  5. MABTHERA [Suspect]
     Active Substance: RITUXIMAB
     Dosage: (AS MAINTENANCE THERAPY)
     Route: 042
     Dates: start: 2015
  6. MABTHERA [Suspect]
     Active Substance: RITUXIMAB
     Indication: NON-HODGKIN^S LYMPHOMA
     Dosage: (CYCLE 1?6 TOGETHER WITH BENDAMUSTINE HYDROCHLORIDE IN MO28457)
     Route: 042
     Dates: start: 20140411
  7. MABTHERA [Suspect]
     Active Substance: RITUXIMAB
     Route: 058
     Dates: start: 20140731

REACTIONS (5)
  - Retching [Unknown]
  - Mental impairment [Not Recovered/Not Resolved]
  - Norovirus infection [Unknown]
  - CD4 lymphocytes decreased [Not Recovered/Not Resolved]
  - Obstruction [Unknown]

NARRATIVE: CASE EVENT DATE: 201409
